FAERS Safety Report 5806300-2 (Version None)
Quarter: 2008Q3

REPORT INFORMATION
  Report Type: 
  Country: None (occurrence: None)
  Receive Date: 20080710
  Receipt Date: 20080630
  Transmission Date: 20090109
  Serious: Yes (Other)
  Sender: FDA-Public Use
  Company Number: SA-JNJFOC-20080701053

PATIENT
  Age: 22 Year
  Sex: Male

DRUGS (2)
  1. TOPAMAX [Suspect]
     Indication: EPILEPSY
     Route: 048
  2. AMYTAL SODIUM [Interacting]
     Indication: NEUROLOGICAL EXAMINATION
     Route: 013

REACTIONS (2)
  - ANAESTHETIC COMPLICATION [None]
  - DRUG INTERACTION [None]
